FAERS Safety Report 4967998-4 (Version None)
Quarter: 2006Q2

REPORT INFORMATION
  Report Type: 
  Country: None (occurrence: None)
  Receive Date: 20060404
  Receipt Date: 20041004
  Transmission Date: 20061013
  Serious: Yes (Hospitalization)
  Sender: FDA-Public Use
  Company Number: 200408799

PATIENT
  Age: 79 Year
  Sex: Female

DRUGS (6)
  1. BOTOX [Suspect]
     Indication: BLEPHAROSPASM
     Dosage: 60 UNITS PRN IM
     Route: 030
     Dates: start: 20031219
  2. BOTOX [Suspect]
     Indication: TORTICOLLIS
     Dosage: 60 UNITS PRN IM
     Route: 030
     Dates: start: 20031219
  3. BOTOX [Suspect]
     Indication: BLEPHAROSPASM
     Dosage: 80 UNITS PRN IM
     Route: 030
     Dates: start: 20040305
  4. BOTOX [Suspect]
     Indication: TORTICOLLIS
     Dosage: 80 UNITS PRN IM
     Route: 030
     Dates: start: 20040305
  5. BOTOX [Suspect]
     Indication: BLEPHAROSPASM
     Dosage: 40 UNITS PRN IM
     Route: 030
     Dates: start: 20040402
  6. BOTOX [Suspect]
     Indication: TORTICOLLIS
     Dosage: 40 UNITS PRN IM
     Route: 030
     Dates: start: 20040402

REACTIONS (18)
  - ANTI-THYROID ANTIBODY POSITIVE [None]
  - ANTIACETYLCHOLINE RECEPTOR ANTIBODY POSITIVE [None]
  - ANTINUCLEAR ANTIBODY POSITIVE [None]
  - ASTHENIA [None]
  - BLEPHAROSPASM [None]
  - CONDITION AGGRAVATED [None]
  - DIFFICULTY IN WALKING [None]
  - DYSARTHRIA [None]
  - DYSLALIA [None]
  - DYSPHAGIA [None]
  - EYELID OEDEMA [None]
  - METHICILLIN-RESISTANT STAPHYLOCOCCAL AUREUS TEST POSITIVE [None]
  - MYASTHENIA GRAVIS [None]
  - ORAL INTAKE REDUCED [None]
  - PNEUMONIA ASPIRATION [None]
  - POST PROCEDURAL COMPLICATION [None]
  - PYREXIA [None]
  - URINARY TRACT INFECTION [None]
